FAERS Safety Report 6028395 (Version 2)
Quarter: 2013Q3

REPORT INFORMATION
  Report Type: Spontaneous
  Country: US (occurrence: None)
  Receive Date: 20060405
  Receipt Date: 20130823
  Transmission Date: 20140515
  Serious: Yes (Other)
  Sender: FDA-Public Use
  Company Number: 2006US-01863

PATIENT
  Age: 33 Year
  Sex: Female

DRUGS (1)
  1. ISOTRETINOIN [Suspect]
     Dosage: 1 MG/KG/DAY, (150 MG/KG TOTAL DOSE), ORAL

REACTIONS (4)
  - Herpes simplex [None]
  - Disease recurrence [None]
  - Cheilitis [None]
  - Photosensitivity reaction [None]
